FAERS Safety Report 20826948 (Version 6)
Quarter: 2022Q3

REPORT INFORMATION
  Report Type: Spontaneous
  Country: US (occurrence: US)
  Receive Date: 20220513
  Receipt Date: 20220711
  Transmission Date: 20221027
  Serious: No
  Sender: FDA-Public Use
  Company Number: US-PFIZER INC-202200581869

PATIENT
  Age: 91 Year
  Sex: Female

DRUGS (2)
  1. IBRANCE [Suspect]
     Active Substance: PALBOCICLIB
     Indication: Breast cancer female
     Dosage: 125 MG, CYCLIC (3X7 UD TAB 21)
     Dates: start: 20220601
  2. IBRANCE [Suspect]
     Active Substance: PALBOCICLIB
     Dosage: 25 MG

REACTIONS (5)
  - Intentional product misuse [Unknown]
  - General physical health deterioration [Unknown]
  - Incoherent [Unknown]
  - Mental disorder [Unknown]
  - Product dose omission issue [Unknown]

NARRATIVE: CASE EVENT DATE: 20220101
